FAERS Safety Report 4958853-4 (Version None)
Quarter: 2006Q1

REPORT INFORMATION
  Report Type: 
  Country: None (occurrence: None)
  Receive Date: 20060324
  Receipt Date: 20060320
  Transmission Date: 20060701
  Serious: Yes (Other)
  Sender: FDA-Public Use
  Company Number: 200611072GDS

PATIENT

DRUGS (1)
  1. AVELOX [Suspect]
     Indication: INFECTION
     Dosage: BID, INTRAVENOUS
     Route: 042
     Dates: start: 20060101

REACTIONS (1)
  - INTRACRANIAL PRESSURE INCREASED [None]
